FAERS Safety Report 6275362-3 (Version None)
Quarter: 2009Q3

REPORT INFORMATION
  Report Type: 
  Country: None (occurrence: None)
  Receive Date: 20090721
  Receipt Date: 20090707
  Transmission Date: 20100115
  Serious: Yes (Other)
  Sender: FDA-Public Use
  Company Number: CA-GENENTECH-287012

PATIENT
  Sex: Male

DRUGS (2)
  1. XOLAIR [Suspect]
     Indication: ASTHMA
     Dosage: 225 MG, UNK
     Route: 058
     Dates: start: 20071218
  2. XOLAIR [Suspect]
     Dosage: 225 MG, UNK
     Route: 058
     Dates: start: 20090707

REACTIONS (1)
  - CATARACT OPERATION [None]
